FAERS Safety Report 8417923-9 (Version None)
Quarter: 2012Q2

REPORT INFORMATION
  Report Type: 
  Country: None (occurrence: None)
  Receive Date: 20120601
  Receipt Date: 20120601
  Transmission Date: 20120825
  Serious: No
  Sender: FDA-Public Use
  Company Number: None

PATIENT
  Sex: Female
  Weight: 58.0604 kg

DRUGS (1)
  1. BENICAR [Suspect]
     Indication: BLOOD PRESSURE INCREASED
     Dosage: 20MG 1 TABLET DAILY
     Dates: start: 20120315, end: 20120407

REACTIONS (5)
  - URINE OUTPUT DECREASED [None]
  - PRURITUS [None]
  - JOINT SWELLING [None]
  - RASH [None]
  - OEDEMA PERIPHERAL [None]
